FAERS Safety Report 4856216-3 (Version None)
Quarter: 2005Q4

REPORT INFORMATION
  Report Type: 
  Country: None (occurrence: None)
  Receive Date: 20051216
  Receipt Date: 20051206
  Transmission Date: 20060501
  Serious: Yes (Hospitalization)
  Sender: FDA-Public Use
  Company Number: CA-MERCK-0512CAN00055

PATIENT
  Age: 64 Year
  Sex: Male
  Weight: 45 kg

DRUGS (3)
  1. VIOXX [Suspect]
     Indication: ANKYLOSING SPONDYLITIS
     Route: 048
     Dates: start: 20000401, end: 20040701
  2. FAMOTIDINE [Concomitant]
     Route: 065
  3. METFORMIN [Concomitant]
     Route: 065
     Dates: start: 20010101

REACTIONS (4)
  - ANGINA UNSTABLE [None]
  - CORONARY ARTERY DISEASE [None]
  - CORONARY ARTERY INSUFFICIENCY [None]
  - CORONARY ARTERY STENOSIS [None]
